FAERS Safety Report 16051386 (Version 3)
Quarter: 2020Q3

REPORT INFORMATION
  Report Type: Report from Study
  Country: CO (occurrence: CO)
  Receive Date: 20190308
  Receipt Date: 20200330
  Transmission Date: 20201105
  Serious: Yes (Hospitalization, Other)
  Sender: FDA-Public Use
  Company Number: CO-ROCHE-2240349

PATIENT
  Sex: Female

DRUGS (4)
  1. TRASTUZUMAB. [Suspect]
     Active Substance: TRASTUZUMAB
     Indication: PRODUCT USED FOR UNKNOWN INDICATION
     Route: 058
  2. BACITRACIN. [Concomitant]
     Active Substance: BACITRACIN
  3. IBANDRONIC ACID. [Suspect]
     Active Substance: IBANDRONIC ACID
     Indication: PRODUCT USED FOR UNKNOWN INDICATION
     Route: 065
  4. MABTHERA [Suspect]
     Active Substance: RITUXIMAB
     Indication: PRODUCT USED FOR UNKNOWN INDICATION
     Route: 065

REACTIONS (37)
  - Drug ineffective [Unknown]
  - Fatigue [Unknown]
  - Hypoaesthesia [Unknown]
  - Dizziness [Unknown]
  - Visual acuity reduced [Unknown]
  - Cardiac disorder [Unknown]
  - Breast mass [Unknown]
  - Metastasis [Recovering/Resolving]
  - Asphyxia [Unknown]
  - Pruritus [Recovering/Resolving]
  - Pain [Unknown]
  - Blood pressure abnormal [Unknown]
  - Immunodeficiency [Unknown]
  - Pain in extremity [Recovering/Resolving]
  - Pleural effusion [Unknown]
  - Feeling abnormal [Unknown]
  - Influenza [Unknown]
  - Mass [Unknown]
  - Syncope [Unknown]
  - Muscle rigidity [Unknown]
  - Tooth fracture [Unknown]
  - Diarrhoea [Unknown]
  - Vomiting [Unknown]
  - Choking [Unknown]
  - Asthenia [Unknown]
  - Paraesthesia [Unknown]
  - Blood glucose abnormal [Unknown]
  - Osteomyelitis [Unknown]
  - Cardiac failure [Unknown]
  - Illness [Unknown]
  - Nausea [Unknown]
  - Rash [Recovered/Resolved]
  - Inflammation [Unknown]
  - Ill-defined disorder [Recovering/Resolving]
  - Inappropriate schedule of product administration [Unknown]
  - Myocardial hypoperfusion [Unknown]
  - Ageusia [Unknown]
